FAERS Safety Report 5737648-8 (Version None)
Quarter: 2008Q2

REPORT INFORMATION
  Report Type: 
  Country: None (occurrence: None)
  Receive Date: 20080514
  Receipt Date: 20080512
  Transmission Date: 20081010
  Serious: Yes (Death)
  Sender: FDA-Public Use
  Company Number: US-BRISTOL-MYERS SQUIBB COMPANY-14187934

PATIENT
  Age: 59 Year
  Sex: Male
  Weight: 62 kg

DRUGS (3)
  1. CETUXIMAB [Suspect]
     Indication: HEAD AND NECK CANCER
     Dosage: START DATE OF FIRST COURSE:01APR08
     Dates: start: 20080429, end: 20080429
  2. CISPLATIN [Suspect]
     Indication: HEAD AND NECK CANCER
     Dosage: START DATE OF FIRST COURSE:01APR08
     Dates: start: 20080429, end: 20080429
  3. RADIATION THERAPY [Suspect]
     Indication: HEAD AND NECK CANCER
     Dosage: 40 DOSAGEFORM = 40 GY. NUMBER OF FRACTIONS 20;NUMBER OF ELASPSED DAYS 25.
     Dates: start: 20080502, end: 20080502

REACTIONS (1)
  - DEATH [None]
